FAERS Safety Report 5151350-5 (Version None)
Quarter: 2006Q4

REPORT INFORMATION
  Report Type: 
  Country: None (occurrence: None)
  Receive Date: 20061114
  Receipt Date: 20061114
  Transmission Date: 20070319
  Serious: No
  Sender: FDA-Public Use
  Company Number: None

PATIENT
  Age: 41 Year
  Sex: Female
  Weight: 56.6996 kg

DRUGS (2)
  1. ACETAMINOPHEN [Suspect]
     Indication: HEADACHE
     Dosage: 500 MG   2-3 TIMES PER DAY   PO
     Route: 048
     Dates: start: 20061028, end: 20061111
  2. ACETAMINOPHEN [Suspect]
     Indication: MYALGIA
     Dosage: 500 MG   2-3 TIMES PER DAY   PO
     Route: 048
     Dates: start: 20061028, end: 20061111

REACTIONS (4)
  - FATIGUE [None]
  - HEADACHE [None]
  - MALAISE [None]
  - STOMACH DISCOMFORT [None]
